FAERS Safety Report 22631884 (Version 1)
Quarter: 2023Q2

REPORT INFORMATION
  Report Type: Report from Study
  Country: BR (occurrence: BR)
  Receive Date: 20230623
  Receipt Date: 20230623
  Transmission Date: 20230721
  Serious: Yes (Other)
  Sender: FDA-Public Use
  Company Number: BR-002147023-NVSC2023BR137987

PATIENT
  Sex: Female

DRUGS (2)
  1. AFINITOR [Suspect]
     Active Substance: EVEROLIMUS
     Indication: Small intestine carcinoma
     Dosage: UNK, QD
     Route: 065
     Dates: start: 2022
  2. LANREOTIDE [Concomitant]
     Active Substance: LANREOTIDE
     Indication: Small intestine carcinoma
     Dosage: UNK, QMO
     Route: 065

REACTIONS (5)
  - Diabetes mellitus [Unknown]
  - Pruritus [Not Recovered/Not Resolved]
  - Burning sensation [Not Recovered/Not Resolved]
  - Dry skin [Not Recovered/Not Resolved]
  - Product use in unapproved indication [Unknown]
